FAERS Safety Report 10227500 (Version 1)
Quarter: 2014Q2

REPORT INFORMATION
  Report Type: Spontaneous
  Country: US (occurrence: None)
  Receive Date: 20140606
  Receipt Date: 20140606
  Transmission Date: 20141212
  Serious: Yes (Death)
  Sender: FDA-Public Use
  Company Number: UNT-2014-001247

PATIENT
  Age: 33 Year
  Sex: Female

DRUGS (2)
  1. REMODULIN [Suspect]
     Indication: PULMONARY ARTERIAL HYPERTENSION
     Dosage: 0.106 UG/KG/MIN, CONTINUING
     Route: 041
     Dates: start: 20110331
  2. WARFARIN (WARFARIN) [Concomitant]

REACTIONS (1)
  - Death [None]
